FAERS Safety Report 5686891-5 (Version None)
Quarter: 2008Q1

REPORT INFORMATION
  Report Type: 
  Country: None (occurrence: None)
  Receive Date: 20080328
  Receipt Date: 20070510
  Transmission Date: 20080703
  Serious: No
  Sender: FDA-Public Use
  Company Number: US-BAYER-US-2007-016971

PATIENT
  Age: 40 Year
  Sex: Female
  Weight: 289 kg

DRUGS (4)
  1. MIRENA [Suspect]
     Route: 015
     Dates: start: 20070420, end: 20070510
  2. ADVAIR DISKUS 100/50 [Concomitant]
  3. DOXYCYCLINE [Concomitant]
  4. VICODIN [Concomitant]

REACTIONS (3)
  - ABDOMINAL PAIN [None]
  - IUCD COMPLICATION [None]
  - POST PROCEDURAL HAEMORRHAGE [None]
